FAERS Safety Report 23431110 (Version 3)
Quarter: 2024Q1

REPORT INFORMATION
  Report Type: Spontaneous
  Country: NL (occurrence: NL)
  Receive Date: 20240123
  Receipt Date: 20240131
  Transmission Date: 20240410
  Serious: Yes (Hospitalization)
  Sender: FDA-Public Use
  Company Number: NL-BAXTER-2024BAX010254

PATIENT
  Age: 68 Year
  Sex: Male
  Weight: 75 kg

DRUGS (16)
  1. RITUXIMAB [Suspect]
     Active Substance: RITUXIMAB
     Indication: Diffuse large B-cell lymphoma
     Route: 065
     Dates: start: 20230929, end: 20231201
  2. CYCLOPHOSPHAMIDE [Suspect]
     Active Substance: CYCLOPHOSPHAMIDE
     Indication: Diffuse large B-cell lymphoma
     Dosage: 1500 MG, EVERY 3 WEEKS
     Route: 065
     Dates: start: 20230929, end: 20231201
  3. DOXORUBICIN [Suspect]
     Active Substance: DOXORUBICIN
     Indication: Diffuse large B-cell lymphoma
     Route: 065
     Dates: start: 20230929, end: 20231201
  4. PREDNISONE [Suspect]
     Active Substance: PREDNISONE
     Indication: Diffuse large B-cell lymphoma
     Dosage: 100 MG C1-6, DAY 1-5, EVERY 1 DAYS
     Route: 065
     Dates: start: 20230929, end: 20231205
  5. EPCORITAMAB [Suspect]
     Active Substance: EPCORITAMAB
     Indication: Diffuse large B-cell lymphoma
     Dosage: 48 MG C1 (STEP- UP), CYCLE 2-4 (21-DAY CYCLE, WEEKLY DOSE), C5-8 (21-DAY CYCLE,EVERY 3 WEEKS) PER PR
     Route: 065
     Dates: start: 20230929, end: 20231215
  6. VINCRISTINE [Suspect]
     Active Substance: VINCRISTINE
     Indication: Diffuse large B-cell lymphoma
     Dosage: 1 MG, EVERY 3 WEEKS
     Route: 065
     Dates: start: 20230929, end: 20231110
  7. ALBUTEROL\IPRATROPIUM [Concomitant]
     Active Substance: ALBUTEROL\IPRATROPIUM
     Indication: Asthma
     Dosage: 4 DOSAGE FORM, AS NECESSARY
     Dates: start: 20231228
  8. AUGMENTIN [Concomitant]
     Active Substance: AMOXICILLIN\CLAVULANATE POTASSIUM
     Indication: Influenza like illness
     Dosage: 625 MG, 3/DAYS
     Dates: start: 20231221, end: 20231227
  9. VALACYCLOVIR HYDROCHLORIDE [Concomitant]
     Active Substance: VALACYCLOVIR HYDROCHLORIDE
     Indication: Antiviral prophylaxis
     Dosage: 500 MG, 2/DAYS
     Dates: start: 20230929
  10. SULFAMETHOXAZOLE\TRIMETHOPRIM [Concomitant]
     Active Substance: SULFAMETHOXAZOLE\TRIMETHOPRIM
     Indication: Antifungal prophylaxis
     Dosage: 480 MG, EVERY 1 DAYS
     Dates: start: 20230929
  11. ALBUTEROL [Concomitant]
     Active Substance: ALBUTEROL
     Indication: Asthma
     Dosage: 100 UG, AS NECESSARY
     Dates: start: 20230404
  12. PANTOPRAZOLE SODIUM [Concomitant]
     Active Substance: PANTOPRAZOLE SODIUM
     Indication: Gastrointestinal disorder prophylaxis
     Dosage: 20 MG, EVERY 1 DAYS
     Dates: start: 20230929
  13. CLEMASTINE [Concomitant]
     Active Substance: CLEMASTINE
     Indication: Allergy prophylaxis
     Dosage: 2 MG, INTERMITTENT
     Dates: start: 20230929
  14. ACETAMINOPHEN [Concomitant]
     Active Substance: ACETAMINOPHEN
     Indication: Prophylaxis
     Dosage: 1000 MG INTERMITTENT
     Dates: start: 20230929
  15. MOVICOLON [Concomitant]
     Active Substance: POLYETHYLENE GLYCOL 3350\POTASSIUM CHLORIDE\SODIUM BICARBONATE\SODIUM CHLORIDE
     Indication: Constipation prophylaxis
     Dosage: 13.9 MG, EVERY 1 DAYS
     Dates: start: 20230929
  16. PEGFILGRASTIM [Concomitant]
     Active Substance: PEGFILGRASTIM
     Indication: Prophylaxis
     Dosage: 6 MG, EVERY 3 WEEKS
     Dates: start: 20231021

REACTIONS (12)
  - Decreased appetite [Unknown]
  - Pyrexia [Not Recovered/Not Resolved]
  - Sputum discoloured [Unknown]
  - Dyspnoea [Unknown]
  - Abnormal faeces [Unknown]
  - Asthma [Unknown]
  - Influenza like illness [Unknown]
  - Cough [Unknown]
  - Faeces discoloured [Unknown]
  - Ear pain [Unknown]
  - Headache [Unknown]
  - Pneumonia [Not Recovered/Not Resolved]

NARRATIVE: CASE EVENT DATE: 20231221
